FAERS Safety Report 14783493 (Version 1)
Quarter: 2018Q2

REPORT INFORMATION
  Report Type: Not Available
  Country: US (occurrence: US)
  Receive Date: 20180420
  Receipt Date: 20180420
  Transmission Date: 20180711
  Serious: No
  Sender: FDA-Public Use
  Company Number: US-NEUROCRINE BIOSCIENCES INC.-2018NBI01165

PATIENT
  Age: 46 Year
  Sex: Male

DRUGS (10)
  1. INGREZZA [Suspect]
     Active Substance: VALBENAZINE
     Indication: TARDIVE DYSKINESIA
     Route: 048
     Dates: start: 20171220, end: 20180315
  2. LITHIUM CARBONATE. [Concomitant]
     Active Substance: LITHIUM CARBONATE
  3. PAROXETINE. [Concomitant]
     Active Substance: PAROXETINE
  4. BENZTROPINE. [Concomitant]
     Active Substance: BENZTROPINE
  5. DIVALPROEX SODIUM. [Concomitant]
     Active Substance: DIVALPROEX SODIUM
  6. OMEPRAZOLE. [Concomitant]
     Active Substance: OMEPRAZOLE
  7. RISPERIDONE. [Concomitant]
     Active Substance: RISPERIDONE
  8. FEXOFENADINE [Concomitant]
     Active Substance: FEXOFENADINE\FEXOFENADINE HYDROCHLORIDE
  9. HALOPERIDOL. [Concomitant]
     Active Substance: HALOPERIDOL
  10. HYDROXYZINE [Concomitant]
     Active Substance: HYDROXYZINE HYDROCHLORIDE

REACTIONS (1)
  - Scratch [Recovered/Resolved]

NARRATIVE: CASE EVENT DATE: 20170228
